FAERS Safety Report 16674025 (Version 2)
Quarter: 2019Q3

REPORT INFORMATION
  Report Type: Spontaneous
  Country: AU (occurrence: PE)
  Receive Date: 20190806
  Receipt Date: 20190823
  Transmission Date: 20191004
  Serious: Yes (Other)
  Sender: FDA-Public Use
  Company Number: AU-ACTELION-A-CH2019-193712

PATIENT
  Age: 39 Year
  Sex: Female

DRUGS (3)
  1. BOSENTAN. [Suspect]
     Active Substance: BOSENTAN
     Indication: PULMONARY ARTERIAL HYPERTENSION
     Dosage: UNK
     Route: 048
  2. ILOPROST. [Concomitant]
     Active Substance: ILOPROST
  3. SILDENAFIL. [Concomitant]
     Active Substance: SILDENAFIL

REACTIONS (3)
  - Presyncope [Unknown]
  - Catheterisation cardiac [Unknown]
  - Balloon atrial septostomy [Unknown]

NARRATIVE: CASE EVENT DATE: 2018
